FAERS Safety Report 13510846 (Version 1)
Quarter: 2017Q2

REPORT INFORMATION
  Report Type: Spontaneous
  Country: US (occurrence: US)
  Receive Date: 20170503
  Receipt Date: 20170503
  Transmission Date: 20170830
  Serious: No
  Sender: FDA-Public Use
  Company Number: US-BAYER-2017-081046

PATIENT
  Age: 65 Year
  Sex: Female
  Weight: 48.53 kg

DRUGS (2)
  1. MIRALAX [Suspect]
     Active Substance: POLYETHYLENE GLYCOL 3350
     Indication: COLONOSCOPY
     Dosage: UNK 1 1/2 8.3 OZ BOTTLE
     Route: 065
  2. MIRALAX [Suspect]
     Active Substance: POLYETHYLENE GLYCOL 3350
     Indication: COLONOSCOPY
     Dosage: UNK 2 CUPS
     Route: 048

REACTIONS (5)
  - Off label use [Unknown]
  - Product odour abnormal [None]
  - Product taste abnormal [None]
  - Retching [Unknown]
  - Product use complaint [Unknown]

NARRATIVE: CASE EVENT DATE: 201701
